FAERS Safety Report 6409159-8 (Version None)
Quarter: 2009Q4

REPORT INFORMATION
  Report Type: 
  Country: None (occurrence: None)
  Receive Date: 20091021
  Receipt Date: 20091012
  Transmission Date: 20100525
  Serious: Yes (Other)
  Sender: FDA-Public Use
  Company Number: PHHY2009MX41090

PATIENT
  Sex: Female

DRUGS (3)
  1. DIOVAN HCT [Suspect]
     Indication: HYPERTENSION
     Dosage: 1 TABLET/DAY
     Route: 048
     Dates: start: 20040701
  2. DIOVAN HCT [Suspect]
     Dosage: 0.5 TABLET/DAY
     Route: 048
     Dates: start: 20080801, end: 20091002
  3. DIOVAN HCT [Suspect]
     Dosage: 0.5 MG DAILY
     Route: 048
     Dates: start: 20091003

REACTIONS (1)
  - HAEMORRHOID OPERATION [None]
